FAERS Safety Report 4463995-6 (Version None)
Quarter: 2004Q3

REPORT INFORMATION
  Report Type: 
  Country: None (occurrence: None)
  Receive Date: 20040929
  Receipt Date: 20040910
  Transmission Date: 20050211
  Serious: Yes (Hospitalization)
  Sender: FDA-Public Use
  Company Number: EWC040940694

PATIENT
  Age: 49 Year
  Sex: Female
  Weight: 62 kg

DRUGS (5)
  1. ALIMTA [Suspect]
     Indication: MESOTHELIOMA
     Dosage: 800 MG/1 OTHER
     Route: 050
     Dates: start: 20040422, end: 20040519
  2. CISPLATIN [Suspect]
     Indication: MESOTHELIOMA
     Dosage: 120 MG/1
     Dates: start: 20040422, end: 20040422
  3. TRAMADOL HCL [Concomitant]
  4. FOLIC ACID [Concomitant]
  5. VITAMIN B-12 [Concomitant]

REACTIONS (3)
  - CATHETER SITE RELATED REACTION [None]
  - IMPAIRED HEALING [None]
  - WOUND ABSCESS [None]
